FAERS Safety Report 4611396-X (Version None)
Quarter: 2005Q1

REPORT INFORMATION
  Report Type: 
  Country: None (occurrence: None)
  Receive Date: 20050315
  Receipt Date: 20050315
  Transmission Date: 20050727
  Serious: Yes (Death, Hospitalization)
  Sender: FDA-Public Use
  Company Number: None

PATIENT
  Age: 67 Year
  Sex: Male
  Weight: 95.9 kg

DRUGS (2)
  1. PACLITAXEL [Suspect]
     Indication: LUNG NEOPLASM MALIGNANT
     Dosage: 426 MG X1 - PO
     Route: 048
     Dates: start: 20050216
  2. GEMCITABINE LILLY 1 GM AND 200 MG VIALS [Suspect]
     Indication: LUNG NEOPLASM MALIGNANT
     Dosage: 2130 MG X1 PO
     Route: 048
     Dates: start: 20050216

REACTIONS (10)
  - CARDIO-RESPIRATORY ARREST [None]
  - HYPOTENSION [None]
  - NAUSEA [None]
  - ORAL INTAKE REDUCED [None]
  - PNEUMONIA [None]
  - RESPIRATORY ARREST [None]
  - RESPIRATORY DISTRESS [None]
  - TACHYCARDIA [None]
  - UNRESPONSIVE TO PAIN STIMULI [None]
  - VOMITING [None]
